FAERS Safety Report 17507935 (Version 2)
Quarter: 2020Q2

REPORT INFORMATION
  Report Type: Report from Study
  Country: GB (occurrence: GB)
  Receive Date: 20200306
  Receipt Date: 20200403
  Transmission Date: 20200713
  Serious: Yes (Hospitalization)
  Sender: FDA-Public Use
  Company Number: NVSC2020GB004186

PATIENT
  Sex: Female

DRUGS (1)
  1. HYRIMOZ [Suspect]
     Active Substance: ADALIMUMAB-ADAZ
     Indication: ANKYLOSING SPONDYLITIS
     Dosage: 1 DF, Q2W
     Route: 058

REACTIONS (5)
  - Product dose omission [Unknown]
  - Cellulitis [Unknown]
  - Ulcer [Unknown]
  - Limb discomfort [Unknown]
  - Nail injury [Unknown]
